FAERS Safety Report 18585452 (Version 1)
Quarter: 2020Q4

REPORT INFORMATION
  Report Type: Spontaneous
  Country: FR (occurrence: FR)
  Receive Date: 20201207
  Receipt Date: 20201207
  Transmission Date: 20210114
  Serious: Yes (Hospitalization)
  Sender: FDA-Public Use
  Company Number: FR-MYLANLABS-2020M1098599

PATIENT
  Age: 78 Year
  Sex: Male
  Weight: 56 kg

DRUGS (12)
  1. DABIGATRAN ETEXILATE [Concomitant]
     Active Substance: DABIGATRAN ETEXILATE
     Indication: COAGULOPATHY
     Dosage: 300 MILLIGRAM, QD (2 X 1 TABLET OF 150 MG PER DAY)
     Route: 048
  2. SERTRALINE ARROW [Suspect]
     Active Substance: SERTRALINE HYDROCHLORIDE
     Dosage: 100 MILLIGRAM, QD (2 X 1 CAPSULES OF 50 MG PER DAY)
     Route: 048
     Dates: start: 20200804, end: 20201011
  3. PRAVASTATINE                       /00880401/ [Concomitant]
     Active Substance: PRAVASTATIN
     Indication: HYPERCHOLESTEROLAEMIA
     Dosage: 40 MILLIGRAM, QD (1 X 1 CAPSULES OF 40 MG PER DAY)
     Route: 048
  4. RAMIPRIL MYLAN 5 MG, COMPRIM? S?CABLE [Suspect]
     Active Substance: RAMIPRIL
     Indication: HYPERTENSION
     Dosage: 5 MILLIGRAM, QD (1 X 1 TABLET OF 5 MG PER DAY)
     Route: 048
     Dates: start: 20180416, end: 20201016
  5. MACROGOL [Concomitant]
     Active Substance: POLYETHYLENE GLYCOLS
     Indication: CONSTIPATION
     Dosage: 2 DOSAGE FORM, PRN (2 SACHETS PER DAY IF NECESSARY)
     Route: 048
     Dates: start: 20201015
  6. SERTRALINE ARROW [Suspect]
     Active Substance: SERTRALINE HYDROCHLORIDE
     Indication: MIXED ANXIETY AND DEPRESSIVE DISORDER
     Dosage: 150 MILLIGRAM, QD (3 X 1 CAPSULES OF 50 MG PER DAY)
     Route: 048
     Dates: start: 20201012, end: 20201015
  7. ESIDREX [Suspect]
     Active Substance: HYDROCHLOROTHIAZIDE
     Indication: HYPERTENSION
     Dosage: 12.5 MILLIGRAM, QD (1 X 0.5 TABLET OF 25 MG PER DAY)
     Route: 048
     Dates: start: 20180416, end: 20201016
  8. TEMESTA                            /00273201/ [Concomitant]
     Active Substance: LORAZEPAM
     Indication: ANXIETY
     Dosage: 3 MILLIGRAM, QD (3 X 1 TABLET OF 1 MG PER DAY)
     Route: 048
     Dates: start: 20201013
  9. OXAZEPAM. [Concomitant]
     Active Substance: OXAZEPAM
     Indication: ANXIETY
     Dosage: 30 MILLIGRAM, QD (3 X 1 TABLET OF 10 MG PER DAY)
     Route: 048
  10. ZOPICLONE [Concomitant]
     Active Substance: ZOPICLONE
     Indication: INSOMNIA
     Dosage: 7.5 MILLIGRAM, QD
     Route: 048
  11. BISOPROLOL FUMARATE. [Concomitant]
     Active Substance: BISOPROLOL FUMARATE
     Indication: HYPERTENSION
     Dosage: 10 MILLIGRAM, QD (1 X 1 TABLET OF 10 MG PER DAY)
     Route: 048
  12. RAMIPRIL MYLAN 2,5 MG, COMPRIM? S?CABLE [Suspect]
     Active Substance: RAMIPRIL
     Indication: HYPERTENSION
     Dosage: 2.5 MILLIGRAM, QD (1 X 1 TABLET OF 2.5 MG PER DAY)
     Route: 048
     Dates: start: 20170331, end: 20201015

REACTIONS (1)
  - Hyponatraemia [Recovering/Resolving]

NARRATIVE: CASE EVENT DATE: 20200928
